FAERS Safety Report 4332724-9 (Version None)
Quarter: 2004Q1

REPORT INFORMATION
  Report Type: 
  Country: None (occurrence: None)
  Receive Date: 20040330
  Receipt Date: 20040318
  Transmission Date: 20041129
  Serious: Yes (Death)
  Sender: FDA-Public Use
  Company Number: HQWYE873209FEB04

PATIENT
  Age: 69 Year
  Sex: Female

DRUGS (13)
  1. RAPAMUNE [Suspect]
     Indication: IMMUNOSUPPRESSANT DRUG THERAPY
     Dosage: 3 MG 1X PER 1 DAY ORAL
     Route: 048
     Dates: start: 20031119
  2. SULFAMETHOXAZOLE + TRIMETHOPRIM [Concomitant]
  3. RANITIDINE [Concomitant]
  4. METOCLOPRAMIDE [Concomitant]
  5. NIFEDIPINE [Concomitant]
  6. CYCLOSPORINE [Concomitant]
  7. AMLODIPINE BESYLATE [Concomitant]
  8. ISOSORBIDE MONONITRATE [Concomitant]
  9. ATENOLOL [Concomitant]
  10. CALCIUM CARBONATE (CALCIUM CARBONATE) [Concomitant]
  11. PREDNISONE [Concomitant]
  12. MULTIVITAMINS (ASCORBIC ACID/ERGOCALCIFEROL/FOLIC ACID/NICOTINAMIDE/PA [Concomitant]
  13. FOLIC ACID [Concomitant]

REACTIONS (11)
  - CARDIAC ARREST [None]
  - DEEP VEIN THROMBOSIS [None]
  - DYSPNOEA [None]
  - GRAFT COMPLICATION [None]
  - HAEMATOMA [None]
  - HYPERHIDROSIS [None]
  - HYPOTENSION [None]
  - MUSCLE HAEMORRHAGE [None]
  - PULMONARY EMBOLISM [None]
  - PULSE PRESSURE DECREASED [None]
  - SYNCOPE [None]
